FAERS Safety Report 23932347 (Version 3)
Quarter: 2024Q4

REPORT INFORMATION
  Report Type: Spontaneous
  Country: CA (occurrence: CA)
  Receive Date: 20240603
  Receipt Date: 20241127
  Transmission Date: 20250115
  Serious: Yes (Other)
  Sender: PFIZER
  Company Number: CA-PFIZER INC-202300251610

PATIENT
  Age: 57 Year
  Sex: Male

DRUGS (3)
  1. CIBINQO [Suspect]
     Active Substance: ABROCITINIB
     Indication: Dermatitis atopic
     Dosage: 200 MG, 1X/DAY
     Route: 048
     Dates: start: 20230110, end: 2024
  2. CIBINQO [Suspect]
     Active Substance: ABROCITINIB
     Dosage: 100 MG, 1X/DAY
     Route: 048
     Dates: start: 2024, end: 2024
  3. CIBINQO [Suspect]
     Active Substance: ABROCITINIB
     Dosage: 100 MG, 2X/DAY
     Route: 048
     Dates: start: 2024

REACTIONS (6)
  - Condition aggravated [Unknown]
  - Abdominal discomfort [Unknown]
  - Product dose omission issue [Unknown]
  - Product dose omission in error [Unknown]
  - Off label use [Unknown]
  - Discomfort [Unknown]

NARRATIVE: CASE EVENT DATE: 20230101
